FAERS Safety Report 10224166 (Version 2)
Quarter: 2014Q2

REPORT INFORMATION
  Report Type: Spontaneous
  Country: BR (occurrence: BR)
  Receive Date: 20140609
  Receipt Date: 20140626
  Transmission Date: 20141212
  Serious: Yes (Hospitalization)
  Sender: FDA-Public Use
  Company Number: BR-SA-2014SA071386

PATIENT
  Age: 76 Year
  Sex: Female

DRUGS (3)
  1. LANTUS [Suspect]
     Indication: DIABETES MELLITUS
     Dosage: APPROXIMATELY 3-4 YEARS AGO
     Route: 065
  2. MAREVAN [Suspect]
     Indication: CARDIAC DISORDER
     Dosage: APPROXIMATELY 3-4YEARS AGO
     Route: 065
  3. CLIKSTAR [Concomitant]
     Indication: DEVICE THERAPY

REACTIONS (1)
  - Subdural haematoma [Recovered/Resolved]
